FAERS Safety Report 17621980 (Version 12)
Quarter: 2021Q3

REPORT INFORMATION
  Report Type: Report from Study
  Country: US (occurrence: US)
  Receive Date: 20200403
  Receipt Date: 20210824
  Transmission Date: 20211014
  Serious: Yes (Hospitalization, Other)
  Sender: FDA-Public Use
  Company Number: US-GLAXOSMITHKLINE-US2019TSO231828

PATIENT
  Age: 61 Year
  Sex: Female

DRUGS (11)
  1. NIRAPARIB [Suspect]
     Active Substance: NIRAPARIB
     Dosage: 100 MG, QD
     Route: 048
  2. NIRAPARIB [Suspect]
     Active Substance: NIRAPARIB
     Indication: OVARIAN CANCER
     Dosage: 200 MG, QD
     Route: 048
     Dates: start: 20191212
  3. NIRAPARIB [Suspect]
     Active Substance: NIRAPARIB
     Dosage: 300 MG, QD
     Route: 048
     Dates: start: 20191212
  4. NIRAPARIB [Suspect]
     Active Substance: NIRAPARIB
     Dosage: 100 MG, QD
     Route: 048
  5. NIRAPARIB [Suspect]
     Active Substance: NIRAPARIB
     Dosage: 100 MG, QD
  6. NIRAPARIB [Suspect]
     Active Substance: NIRAPARIB
     Dosage: 100 MG, QD
  7. NIRAPARIB [Suspect]
     Active Substance: NIRAPARIB
     Dosage: 100 MG, QD
     Route: 048
  8. NIRAPARIB [Suspect]
     Active Substance: NIRAPARIB
     Dosage: UNK
     Route: 065
  9. NIRAPARIB [Suspect]
     Active Substance: NIRAPARIB
     Dosage: 100 MG, QD
     Route: 065
  10. NIRAPARIB [Suspect]
     Active Substance: NIRAPARIB
     Dosage: 300 MG, QD
     Route: 065
  11. NIRAPARIB [Suspect]
     Active Substance: NIRAPARIB
     Dosage: 100 MG, QD
     Route: 048

REACTIONS (35)
  - Pain in jaw [Unknown]
  - Ear infection [Not Recovered/Not Resolved]
  - Rash macular [Not Recovered/Not Resolved]
  - Hypoaesthesia [Unknown]
  - Paraesthesia [Unknown]
  - Nausea [Not Recovered/Not Resolved]
  - Fatigue [Not Recovered/Not Resolved]
  - Palpitations [Unknown]
  - Abdominal pain [Recovered/Resolved]
  - Blood count abnormal [Unknown]
  - Near death experience [Unknown]
  - Asthenia [Not Recovered/Not Resolved]
  - Oropharyngeal pain [Recovered/Resolved]
  - White coat hypertension [Not Recovered/Not Resolved]
  - Blood cholesterol increased [Unknown]
  - Weight increased [Unknown]
  - Anxiety [Unknown]
  - Seasonal allergy [Unknown]
  - Scan abnormal [Unknown]
  - Myocardial infarction [Unknown]
  - Contusion [Not Recovered/Not Resolved]
  - Insomnia [Not Recovered/Not Resolved]
  - Illness [Unknown]
  - Drug intolerance [Unknown]
  - Heart rate increased [Recovered/Resolved]
  - Abdominal discomfort [Unknown]
  - Platelet count decreased [Unknown]
  - Cardiac disorder [Not Recovered/Not Resolved]
  - Back pain [Recovered/Resolved]
  - Anaemia [Unknown]
  - Cough [Unknown]
  - Nasal congestion [Unknown]
  - Hypertension [Not Recovered/Not Resolved]
  - Musculoskeletal discomfort [Unknown]
  - Product dose omission issue [Unknown]

NARRATIVE: CASE EVENT DATE: 201912
